FAERS Safety Report 15415085 (Version 3)
Quarter: 2021Q1

REPORT INFORMATION
  Report Type: Report from Study
  Country: None (occurrence: CA)
  Receive Date: 20180921
  Receipt Date: 20210111
  Transmission Date: 20210419
  Serious: Yes (Hospitalization, Other)
  Sender: FDA-Public Use
  Company Number: CA-ABBVIE-15K-028-1330448-00

PATIENT
  Sex: Female

DRUGS (4)
  1. HUMIRA [Suspect]
     Active Substance: ADALIMUMAB
     Route: 058
     Dates: start: 201805
  2. CHOLESTYRAMINE. [Suspect]
     Active Substance: CHOLESTYRAMINE
     Indication: PRODUCT USED FOR UNKNOWN INDICATION
     Route: 065
  3. HUMIRA [Suspect]
     Active Substance: ADALIMUMAB
     Indication: CROHN^S DISEASE
     Route: 058
     Dates: start: 20120411
  4. ENTOCORT [Suspect]
     Active Substance: BUDESONIDE
     Indication: FREQUENT BOWEL MOVEMENTS
     Route: 065

REACTIONS (32)
  - Nasal septum deviation [Not Recovered/Not Resolved]
  - Rectal haemorrhage [Unknown]
  - Bile acid malabsorption [Unknown]
  - Colitis [Unknown]
  - Malaise [Unknown]
  - Fatigue [Unknown]
  - Nausea [Recovered/Resolved]
  - Abdominal pain lower [Unknown]
  - Abdominal discomfort [Unknown]
  - Postoperative adhesion [Recovered/Resolved]
  - Post-traumatic stress disorder [Not Recovered/Not Resolved]
  - Abdominal pain [Recovered/Resolved]
  - Crohn^s disease [Unknown]
  - Retching [Unknown]
  - Diarrhoea [Unknown]
  - Ulcer [Unknown]
  - Wound infection [Unknown]
  - Arthralgia [Unknown]
  - Postoperative ileus [Unknown]
  - Intestinal anastomosis [Unknown]
  - Gastrointestinal anastomotic stenosis [Unknown]
  - Adhesion [Unknown]
  - Surgery [Unknown]
  - Enteritis [Unknown]
  - Discomfort [Unknown]
  - Ileal stenosis [Unknown]
  - Frequent bowel movements [Recovering/Resolving]
  - Abdominal distension [Unknown]
  - Adverse drug reaction [Not Recovered/Not Resolved]
  - Inflammation [Unknown]
  - Intestinal obstruction [Unknown]
  - Intestinal resection [Unknown]

NARRATIVE: CASE EVENT DATE: 2014
